FAERS Safety Report 6041198-1 (Version None)
Quarter: 2009Q1

REPORT INFORMATION
  Report Type: 
  Country: None (occurrence: None)
  Receive Date: 20090116
  Receipt Date: 20080916
  Transmission Date: 20090719
  Serious: Yes (Other)
  Sender: FDA-Public Use
  Company Number: US-BRISTOL-MYERS SQUIBB COMPANY-14336788

PATIENT
  Age: 21 Year
  Sex: Female

DRUGS (4)
  1. ABILIFY [Suspect]
  2. TRAZODONE HCL [Concomitant]
  3. KLONOPIN [Concomitant]
  4. CYMBALTA [Concomitant]
     Dosage: 1 DF = 30 UNIT NOT SPECIFIED.

REACTIONS (1)
  - RHABDOMYOLYSIS [None]
